FAERS Safety Report 10086003 (Version 1)
Quarter: 2014Q2

REPORT INFORMATION
  Report Type: Spontaneous
  Country: GB (occurrence: None)
  Receive Date: 20140416
  Receipt Date: 20140416
  Transmission Date: 20141212
  Serious: Yes (Other)
  Sender: FDA-Public Use
  Company Number: AUR-APL-2014-04421

PATIENT
  Age: 79 Year
  Sex: Female
  Weight: 63.5 kg

DRUGS (8)
  1. SIMVASTATIN (SIMVASTATIN) [Suspect]
     Indication: PRODUCT USED FOR UNKNOWN INDICATION
     Dates: start: 20140327
  2. AMLODIPINE [Concomitant]
  3. DIAZEPAM [Concomitant]
  4. FORTISIP [Concomitant]
  5. FYBOGEL [Concomitant]
  6. LACTULOSE [Concomitant]
  7. PARACETAMOL [Concomitant]
  8. PREGABALIN [Concomitant]

REACTIONS (2)
  - Vomiting [None]
  - Tremor [None]
